FAERS Safety Report 9525457 (Version 2)
Quarter: 2013Q3

REPORT INFORMATION
  Report Type: Report from Study
  Country: DE (occurrence: DE)
  Receive Date: 20130916
  Receipt Date: 20130916
  Transmission Date: 20140515
  Serious: Yes (Hospitalization)
  Sender: FDA-Public Use
  Company Number: DE-ELI_LILLY_AND_COMPANY-DE201307010278

PATIENT
  Sex: Female

DRUGS (4)
  1. TERIPARATIDE [Suspect]
     Indication: OSTEOPOROSIS
     Dosage: UNK, QD
     Route: 058
     Dates: start: 20120426
  2. VITAMIN D [Concomitant]
     Dosage: 1000 IU, QD
     Route: 065
  3. CALCIUM [Concomitant]
     Dosage: 500 MG, PRN
     Route: 065
  4. LAFAMME [Concomitant]
     Dosage: UNK, UNKNOWN
     Route: 065

REACTIONS (2)
  - Cholelithiasis [Unknown]
  - Tension [Unknown]
